FAERS Safety Report 24456552 (Version 2)
Quarter: 2024Q4

REPORT INFORMATION
  Report Type: Report from Study
  Country: US (occurrence: US)
  Receive Date: 20241017
  Receipt Date: 20241018
  Transmission Date: 20250115
  Serious: No
  Sender: ROCHE
  Company Number: US-ROCHE-3513955

PATIENT
  Age: 62 Year
  Sex: Male
  Weight: 111.13 kg

DRUGS (1)
  1. RITUXAN [Suspect]
     Active Substance: RITUXIMAB
     Indication: Sarcoidosis
     Dosage: INTRAVENOUS DAILY SHOT OVER 4 HOURS FOR 1 DAY IN NS 1000 ML , 375 WKLY?DATE OF SERVICE : 23/FEB/2024
     Route: 042
     Dates: start: 20240215

REACTIONS (2)
  - Off label use [Unknown]
  - No adverse event [Unknown]
